FAERS Safety Report 7821708-1 (Version None)
Quarter: 2011Q4

REPORT INFORMATION
  Report Type: 
  Country: None (occurrence: None)
  Receive Date: 20111018
  Receipt Date: 20101201
  Transmission Date: 20120403
  Serious: No
  Sender: FDA-Public Use
  Company Number: US-ASTRAZENECA-2010SE56994

PATIENT
  Age: 31 Year
  Sex: Female

DRUGS (1)
  1. SYMBICORT [Suspect]
     Indication: ASTHMA
     Dosage: 1 PUFF TWICE A DAY
     Route: 055

REACTIONS (3)
  - EAR DISCOMFORT [None]
  - INCORRECT DOSE ADMINISTERED [None]
  - NERVOUSNESS [None]
